FAERS Safety Report 5162952-4 (Version None)
Quarter: 2006Q4

REPORT INFORMATION
  Report Type: 
  Country: None (occurrence: None)
  Receive Date: 20061201
  Receipt Date: 20061120
  Transmission Date: 20070319
  Serious: Yes (Other)
  Sender: FDA-Public Use
  Company Number: AR-BRISTOL-MYERS SQUIBB COMPANY-13585526

PATIENT

DRUGS (1)
  1. DIDANOSINE [Suspect]

REACTIONS (1)
  - PORTAL HYPERTENSION [None]
